FAERS Safety Report 6636261-8 (Version None)
Quarter: 2010Q1

REPORT INFORMATION
  Report Type: 
  Country: None (occurrence: None)
  Receive Date: 20100226
  Receipt Date: 20100208
  Transmission Date: 20100710
  Serious: Yes (Other)
  Sender: FDA-Public Use
  Company Number: 2010-00234

PATIENT
  Age: 40 Year
  Sex: Female
  Weight: 72.5755 kg

DRUGS (3)
  1. ZICAM COLD REMEDY RAPIDMELTS WITH VITAMIN C [Suspect]
     Dosage: QID - 7 DAYS
     Dates: start: 20100101
  2. ZICAM COLD REMEDY RAPIDMELTS [Suspect]
     Dosage: 7 DAYS
     Dates: start: 20100101
  3. LISINOPRIL [Concomitant]

REACTIONS (1)
  - AGEUSIA [None]
